FAERS Safety Report 13570780 (Version 2)
Quarter: 2017Q2

REPORT INFORMATION
  Report Type: Report from Study
  Country: None (occurrence: AU)
  Receive Date: 20170523
  Receipt Date: 20170607
  Transmission Date: 20170830
  Serious: Yes (Hospitalization)
  Sender: FDA-Public Use
  Company Number: AU-ABBVIE-17K-008-1984128-00

PATIENT
  Sex: Male

DRUGS (2)
  1. DUODOPA [Suspect]
     Active Substance: CARBIDOPA\LEVODOPA
     Dosage: CONTINUOUS RATE 6.2MLS PER HOUR
     Route: 050
     Dates: start: 20170605
  2. DUODOPA [Suspect]
     Active Substance: CARBIDOPA\LEVODOPA
     Indication: PARKINSON^S DISEASE
     Dosage: 16HOUR INFUSION
     Route: 050
     Dates: start: 20170421, end: 20170605

REACTIONS (3)
  - Freezing phenomenon [Unknown]
  - Fall [Not Recovered/Not Resolved]
  - Parkinsonian gait [Unknown]

NARRATIVE: CASE EVENT DATE: 2017
